FAERS Safety Report 21697917 (Version 2)
Quarter: 2022Q4

REPORT INFORMATION
  Report Type: Other
  Country: IN (occurrence: None)
  Receive Date: 20221208
  Receipt Date: 20221214
  Transmission Date: 20230112
  Serious: Yes (Other)
  Sender: FDA-Public Use
  Company Number: IN-ROCHE-3234659

PATIENT
  Age: 65 Year
  Sex: Male

DRUGS (3)
  1. BEVACIZUMAB [Suspect]
     Active Substance: BEVACIZUMAB
     Indication: Angle closure glaucoma
     Route: 050
  2. BEVACIZUMAB [Suspect]
     Active Substance: BEVACIZUMAB
     Indication: Iris neovascularisation
  3. BEVACIZUMAB [Suspect]
     Active Substance: BEVACIZUMAB
     Indication: Episcleral venous pressure increased

REACTIONS (3)
  - Choroidal haemorrhage [Recovered/Resolved]
  - Off label use [Unknown]
  - Off label use [Unknown]
